FAERS Safety Report 4659841-8 (Version None)
Quarter: 2005Q2

REPORT INFORMATION
  Report Type: 
  Country: None (occurrence: None)
  Receive Date: 20050502
  Receipt Date: 20050223
  Transmission Date: 20051028
  Serious: Yes (Other)
  Sender: FDA-Public Use
  Company Number: 200511566US

PATIENT
  Age: 38 Year
  Sex: Male

DRUGS (3)
  1. KETEK [Suspect]
     Indication: SINUSITIS
     Dosage: 400 MG BID PO
     Route: 048
     Dates: start: 20050222, end: 20050222
  2. PROZAC [Concomitant]
  3. OTHER MEDICATIONS [Concomitant]

REACTIONS (2)
  - EUPHORIC MOOD [None]
  - MOTOR DYSFUNCTION [None]
